FAERS Safety Report 6396407-6 (Version None)
Quarter: 2009Q4

REPORT INFORMATION
  Report Type: 
  Country: None (occurrence: None)
  Receive Date: 20091012
  Receipt Date: 20090924
  Transmission Date: 20100525
  Serious: Yes (Death)
  Sender: FDA-Public Use
  Company Number: PHHY2009DE41278

PATIENT
  Sex: Female
  Weight: 75 kg

DRUGS (11)
  1. ZOMETA [Suspect]
     Indication: BONE DISORDER
     Dosage: 4 MG EVERY 4 WEEKS
     Dates: start: 20090805
  2. ZOMETA [Suspect]
     Dosage: 4 MG EVERY 4 WEEKS
     Dates: start: 20090903
  3. DURAGESIC-100 [Concomitant]
     Dosage: 12 UG, UNK
  4. ANASTROZOLE [Concomitant]
     Dosage: UNK
     Dates: start: 20040901
  5. HERCEPTIN [Concomitant]
     Dosage: UNK
     Dates: start: 20090201, end: 20090827
  6. FORTECORTIN [Concomitant]
     Dosage: 24 MG, UNK
  7. PANTOZOL [Concomitant]
     Dosage: 80 UNK, UNK
  8. BISOPROLOL [Concomitant]
     Dosage: 2.5 UNK, UNK
  9. LIORESAL [Concomitant]
     Dosage: 3 DF, UNK
  10. SEVREDOL [Concomitant]
     Dosage: 10 UNK, UNK
  11. AMPHOTERICIN B [Concomitant]
     Dosage: 4 DF, UNK

REACTIONS (1)
  - MALIGNANT NEOPLASM PROGRESSION [None]
